FAERS Safety Report 7658673-6 (Version None)
Quarter: 2011Q3

REPORT INFORMATION
  Report Type: 
  Country: None (occurrence: None)
  Receive Date: 20110805
  Receipt Date: 20110803
  Transmission Date: 20111222
  Serious: Yes (Hospitalization)
  Sender: FDA-Public Use
  Company Number: US-PFIZER INC-2011178901

PATIENT
  Sex: Female

DRUGS (1)
  1. CHANTIX [Suspect]
     Dosage: UNK
     Route: 048
     Dates: start: 20100301

REACTIONS (4)
  - ABNORMAL BEHAVIOUR [None]
  - SUICIDE ATTEMPT [None]
  - SUICIDAL IDEATION [None]
  - MENTAL DISORDER [None]
